FAERS Safety Report 4916694-8 (Version None)
Quarter: 2006Q1

REPORT INFORMATION
  Report Type: 
  Country: None (occurrence: None)
  Receive Date: 20060220
  Receipt Date: 20051004
  Transmission Date: 20060701
  Serious: Yes (Death)
  Sender: FDA-Public Use
  Company Number: PHHO2005SG15624

PATIENT
  Sex: Female
  Weight: 55 kg

DRUGS (5)
  1. GLEEVEC [Suspect]
     Indication: GASTROINTESTINAL STROMAL TUMOUR
     Dosage: 400 MG, QD
     Route: 048
     Dates: start: 20010101
  2. GLEEVEC [Suspect]
     Route: 048
     Dates: start: 20050601
  3. TRAMADOL [Concomitant]
  4. MAXOLON [Concomitant]
  5. OMEPRAZOLE [Concomitant]

REACTIONS (1)
  - RENAL FAILURE ACUTE [None]
